FAERS Safety Report 19453103 (Version 1)
Quarter: 2021Q2

REPORT INFORMATION
  Report Type: Spontaneous
  Country: US (occurrence: US)
  Receive Date: 20210623
  Receipt Date: 20210623
  Transmission Date: 20210717
  Serious: Yes (Death, Other)
  Sender: FDA-Public Use
  Company Number: US-GLAXOSMITHKLINE-US2021GSK131823

PATIENT
  Sex: Male

DRUGS (4)
  1. ZANTAC [Suspect]
     Active Substance: RANITIDINE HYDROCHLORIDE
     Indication: NAUSEA
     Dosage: UNK, AS NEEDED
     Route: 065
     Dates: start: 200401, end: 200901
  2. ZANTAC [Suspect]
     Active Substance: RANITIDINE HYDROCHLORIDE
     Indication: NAUSEA
     Dosage: UNK, AS NEEDED
     Route: 065
     Dates: start: 200401, end: 200901
  3. RANITIDINE CAPSULE [Suspect]
     Active Substance: RANITIDINE
     Indication: NAUSEA
     Dosage: UNK, AS NEEDED
     Route: 065
     Dates: start: 200401, end: 200901
  4. ZANTAC [Suspect]
     Active Substance: RANITIDINE HYDROCHLORIDE
     Indication: NAUSEA
     Dosage: UNK, AS NEEDED
     Route: 065
     Dates: start: 200401, end: 200901

REACTIONS (1)
  - Non-Hodgkin^s lymphoma [Fatal]
